FAERS Safety Report 15918307 (Version 3)
Quarter: 2019Q3

REPORT INFORMATION
  Report Type: Spontaneous
  Country: US (occurrence: US)
  Receive Date: 20190205
  Receipt Date: 20190731
  Transmission Date: 20191004
  Serious: Yes (Other)
  Sender: FDA-Public Use
  Company Number: US-ASTRAZENECA-2018SF65843

PATIENT
  Age: 22911 Day
  Sex: Female

DRUGS (35)
  1. PRILOSEC [Suspect]
     Active Substance: OMEPRAZOLE MAGNESIUM
     Indication: GASTROOESOPHAGEAL REFLUX DISEASE
     Route: 048
     Dates: start: 1988, end: 2002
  2. TAGAMET HB OTC [Concomitant]
     Dates: start: 1976, end: 1984
  3. NEXIUM [Suspect]
     Active Substance: ESOMEPRAZOLE MAGNESIUM
     Indication: ULCER HAEMORRHAGE
     Route: 048
     Dates: start: 2010, end: 2017
  4. PRILOSEC [Suspect]
     Active Substance: OMEPRAZOLE MAGNESIUM
     Indication: GASTROOESOPHAGEAL REFLUX DISEASE
     Route: 048
     Dates: start: 19980101
  5. METFORMIN [Concomitant]
     Active Substance: METFORMIN HYDROCHLORIDE
  6. PRILOSEC [Suspect]
     Active Substance: OMEPRAZOLE MAGNESIUM
     Indication: GASTROOESOPHAGEAL REFLUX DISEASE
     Dosage: FOR MULTIPLE AND VARIOUS YEARS
     Route: 048
  7. DEXILANT [Suspect]
     Active Substance: DEXLANSOPRAZOLE
     Indication: GASTROOESOPHAGEAL REFLUX DISEASE
     Route: 065
     Dates: start: 2017, end: 2018
  8. DEXILANT [Suspect]
     Active Substance: DEXLANSOPRAZOLE
     Indication: ULCER HAEMORRHAGE
     Route: 065
     Dates: start: 2016, end: 2017
  9. ALBUTEROL. [Concomitant]
     Active Substance: ALBUTEROL
  10. DULOXETINE. [Concomitant]
     Active Substance: DULOXETINE
  11. MAOLOX [Concomitant]
     Dates: start: 1972, end: 1974
  12. NEXIUM [Suspect]
     Active Substance: ESOMEPRAZOLE MAGNESIUM
     Indication: ULCER HAEMORRHAGE
     Route: 048
     Dates: start: 2010, end: 2016
  13. PRILOSEC [Suspect]
     Active Substance: OMEPRAZOLE MAGNESIUM
     Indication: ULCER HAEMORRHAGE
     Route: 048
     Dates: start: 1988, end: 2002
  14. NEXIUM [Suspect]
     Active Substance: ESOMEPRAZOLE MAGNESIUM
     Indication: ULCER HAEMORRHAGE
     Route: 048
     Dates: start: 19980101
  15. PRILOSEC [Suspect]
     Active Substance: OMEPRAZOLE MAGNESIUM
     Indication: ULCER HAEMORRHAGE
     Dosage: FOR MULTIPLE AND VARIOUS YEARS
     Route: 048
  16. PREVACID [Suspect]
     Active Substance: LANSOPRAZOLE
     Indication: ULCER HAEMORRHAGE
     Route: 065
     Dates: start: 2002, end: 2010
  17. LISINOPRIL. [Concomitant]
     Active Substance: LISINOPRIL
  18. NEXIUM [Suspect]
     Active Substance: ESOMEPRAZOLE MAGNESIUM
     Indication: GASTROOESOPHAGEAL REFLUX DISEASE
     Route: 048
     Dates: start: 2010, end: 2017
  19. PRILOSEC [Suspect]
     Active Substance: OMEPRAZOLE MAGNESIUM
     Indication: ULCER HAEMORRHAGE
     Route: 048
     Dates: start: 19980101
  20. PREVACID [Suspect]
     Active Substance: LANSOPRAZOLE
     Indication: GASTROOESOPHAGEAL REFLUX DISEASE
     Dosage: FOR MULTIPLE AND VARIOUS YEARS
     Route: 065
  21. CRESTOR [Concomitant]
     Active Substance: ROSUVASTATIN CALCIUM
  22. ALLEGRA [Concomitant]
     Active Substance: FEXOFENADINE HYDROCHLORIDE
     Indication: HYPERSENSITIVITY
  23. NEXIUM [Suspect]
     Active Substance: ESOMEPRAZOLE MAGNESIUM
     Indication: GASTROOESOPHAGEAL REFLUX DISEASE
     Route: 048
     Dates: start: 19980101
  24. NEXIUM [Suspect]
     Active Substance: ESOMEPRAZOLE MAGNESIUM
     Indication: GASTROOESOPHAGEAL REFLUX DISEASE
     Dosage: FOR MULTIPLE AND VARIOUS YEARS
     Route: 048
  25. PREVACID [Suspect]
     Active Substance: LANSOPRAZOLE
     Indication: ULCER HAEMORRHAGE
     Route: 065
     Dates: start: 19980101
  26. DEXILANT [Suspect]
     Active Substance: DEXLANSOPRAZOLE
     Indication: GASTROOESOPHAGEAL REFLUX DISEASE
     Route: 065
     Dates: start: 2016, end: 2017
  27. NEXIUM [Suspect]
     Active Substance: ESOMEPRAZOLE MAGNESIUM
     Indication: ULCER HAEMORRHAGE
     Dosage: FOR MULTIPLE AND VARIOUS YEARS
     Route: 048
  28. NEXIUM [Suspect]
     Active Substance: ESOMEPRAZOLE MAGNESIUM
     Indication: GASTROOESOPHAGEAL REFLUX DISEASE
     Route: 048
     Dates: start: 2010, end: 2016
  29. PREVACID [Suspect]
     Active Substance: LANSOPRAZOLE
     Indication: GASTROOESOPHAGEAL REFLUX DISEASE
     Route: 065
     Dates: start: 19980101
  30. PREVACID [Suspect]
     Active Substance: LANSOPRAZOLE
     Indication: ULCER HAEMORRHAGE
     Dosage: FOR MULTIPLE AND VARIOUS YEARS
     Route: 065
  31. PREVACID [Suspect]
     Active Substance: LANSOPRAZOLE
     Indication: GASTROOESOPHAGEAL REFLUX DISEASE
     Route: 065
     Dates: start: 2002, end: 2010
  32. DEXILANT [Suspect]
     Active Substance: DEXLANSOPRAZOLE
     Indication: ULCER HAEMORRHAGE
     Route: 065
     Dates: start: 2017, end: 2018
  33. TYLENOL [Concomitant]
     Active Substance: ACETAMINOPHEN
     Indication: SINUS HEADACHE
  34. ZANTAC 150 (RANITIDINE HYDROCHLORIDE) [Concomitant]
     Active Substance: RANITIDINE HYDROCHLORIDE
     Dosage: PRESCRIPTION
     Dates: start: 1984, end: 1988
  35. MYLANTA [Concomitant]
     Active Substance: ALUMINUM HYDROXIDE\DIMETHICONE\MAGNESIUM HYDROXIDE
     Dates: start: 1974, end: 1976

REACTIONS (5)
  - Renal injury [Unknown]
  - Renal failure [Not Recovered/Not Resolved]
  - Rebound acid hypersecretion [Unknown]
  - Diabetes mellitus [Not Recovered/Not Resolved]
  - Chronic kidney disease [Not Recovered/Not Resolved]

NARRATIVE: CASE EVENT DATE: 20150127
